FAERS Safety Report 19363253 (Version 1)
Quarter: 2021Q2

REPORT INFORMATION
  Report Type: Spontaneous
  Country: JP (occurrence: JP)
  Receive Date: 20210602
  Receipt Date: 20210602
  Transmission Date: 20210717
  Serious: Yes (Hospitalization, Other)
  Sender: FDA-Public Use
  Company Number: JP-BRECKENRIDGE PHARMACEUTICAL, INC.-2112239

PATIENT
  Age: 71 Year
  Sex: Female

DRUGS (10)
  1. LANSOPRAZOLE. [Suspect]
     Active Substance: LANSOPRAZOLE
     Route: 048
  2. ROZEREM [Suspect]
     Active Substance: RAMELTEON
  3. PAREPLUS (MIXED AMINO ACID / CARBOHYDRATE/ELECTROLYTE/VITAMIN COMBINED [Concomitant]
  4. QUETIAPINE. [Suspect]
     Active Substance: QUETIAPINE
  5. NIFEDIPINE. [Suspect]
     Active Substance: NIFEDIPINE
  6. MAGNESIUM OXIDE. [Concomitant]
     Active Substance: MAGNESIUM OXIDE
  7. PREDNISOLONE. [Concomitant]
     Active Substance: PREDNISOLONE
  8. SOLDEM 3A (MAINTENANCE MEDIUM) [Concomitant]
  9. MIYA?BM [Concomitant]
     Active Substance: CLOSTRIDIUM BUTYRICUM SPORES STRAIN M-55
  10. BELSOMRA [Suspect]
     Active Substance: SUVOREXANT

REACTIONS (1)
  - Drug eruption [None]
